FAERS Safety Report 25903643 (Version 2)
Quarter: 2025Q4

REPORT INFORMATION
  Report Type: Spontaneous
  Country: CH (occurrence: CH)
  Receive Date: 20251010
  Receipt Date: 20251214
  Transmission Date: 20260117
  Serious: Yes (Death, Other)
  Sender: CSL BEHRING
  Company Number: CH-BEH-2025221238

PATIENT
  Sex: Male

DRUGS (14)
  1. DIFELIKEFALIN ACETATE [Suspect]
     Active Substance: DIFELIKEFALIN ACETATE
     Indication: Pruritus
     Dosage: UNK
     Route: 065
     Dates: start: 20231106, end: 20240823
  2. ASPIRIN [Concomitant]
     Active Substance: ASPIRIN
     Dosage: 1 DF, QD (1-0-0-0)
  3. VENTOLIN [Concomitant]
     Active Substance: ALBUTEROL SULFATE
     Dosage: 200 ?G 4 TIMES A DAY (2-2-2-2) WITH MEAL
  4. MELATONIN [Concomitant]
     Active Substance: MELATONIN
     Dosage: 2 MG, QD CONTROLLED RELEASE TABLET (0-0-0-1)
  5. CREON [Concomitant]
     Active Substance: PANCRELIPASE AMYLASE\PANCRELIPASE LIPASE\PANCRELIPASE PROTEASE
     Dosage: 1-1-1-0
  6. ESCITALOPRAM [Concomitant]
     Active Substance: ESCITALOPRAM OXALATE
     Dosage: 1-0-0-0
  7. EUTHYROX [Concomitant]
     Active Substance: LEVOTHYROXINE SODIUM
     Dosage: 25 ?G 1 TAB AT 07:00 AT 07:00 / NOTHING BY MOUTH
  8. EXCIPIAL ALMONDOIL [Concomitant]
     Dosage: 1-0-1-0
  9. MIRTAZAPINE [Concomitant]
     Active Substance: MIRTAZAPINE
     Dosage: 30 MG, QD (0-0-1-0)
  10. PANTOPRAZOLE [Concomitant]
     Active Substance: PANTOPRAZOLE
     Dosage: 20 MG (1-0-0-0)
  11. PREGABALIN [Concomitant]
     Active Substance: PREGABALIN
     Dosage: 25 MG (0-0-0-1)
  12. QUETIAPINE [Concomitant]
     Active Substance: QUETIAPINE
     Indication: Depression
     Dosage: SANDOZ CONTROLLED-RELEASE TAB (50 MG QD (0-0-1-0)
  13. SODIUM POLYSTYRENE SULFONATE [Concomitant]
     Active Substance: SODIUM POLYSTYRENE SULFONATE
     Dosage: POWDER (15 G/MEASURING SPOON) MON, SUN (0-0-15-0)
  14. GLYCOPYRRONIUM\INDACATEROL [Concomitant]
     Active Substance: GLYCOPYRRONIUM\INDACATEROL
     Dosage: 110MCG/50MCG (1-0-0-0)

REACTIONS (1)
  - Death [Fatal]

NARRATIVE: CASE EVENT DATE: 20250824
